FAERS Safety Report 12730526 (Version 1)
Quarter: 2016Q3

REPORT INFORMATION
  Report Type: Report from Study
  Country: US (occurrence: US)
  Receive Date: 20160909
  Receipt Date: 20160909
  Transmission Date: 20161109
  Serious: No
  Sender: FDA-Public Use
  Company Number: US-AMGEN-USASL2016112557

PATIENT
  Age: 61 Year
  Sex: Female

DRUGS (4)
  1. GLUCOPHAGE [Concomitant]
     Active Substance: METFORMIN HYDROCHLORIDE
     Indication: DIABETES MELLITUS
     Dosage: 1000 MG, BID
  2. METHOTREXATE. [Concomitant]
     Active Substance: METHOTREXATE
     Dosage: 4 TABLETS IN THE MORNING AND FOUR TABLETS IN THE EVENING
     Route: 065
     Dates: start: 2016
  3. METHOTREXATE. [Concomitant]
     Active Substance: METHOTREXATE
     Dosage: 2 MG EACH, SIX TO EIGHT TABLETS ONCE A WEEK
     Route: 065
  4. ENBREL [Suspect]
     Active Substance: ETANERCEPT
     Indication: RHEUMATOID ARTHRITIS
     Dosage: UNK
     Route: 065
     Dates: start: 201602

REACTIONS (6)
  - Pain in extremity [Recovering/Resolving]
  - Plantar fasciitis [Unknown]
  - Infection [Unknown]
  - Tendonitis [Unknown]
  - Mobility decreased [Unknown]
  - Decreased immune responsiveness [Unknown]

NARRATIVE: CASE EVENT DATE: 2016
